FAERS Safety Report 9355251 (Version 1)
Quarter: 2013Q2

REPORT INFORMATION
  Report Type: Spontaneous
  Country: US (occurrence: None)
  Receive Date: 20130618
  Receipt Date: 20130618
  Transmission Date: 20140414
  Serious: Yes (Hospitalization)
  Sender: FDA-Public Use
  Company Number: None

PATIENT
  Age: 16 Year
  Sex: Female

DRUGS (7)
  1. ENBREL [Suspect]
     Route: 058
     Dates: start: 20130201, end: 20130614
  2. FOLIC ACID [Concomitant]
  3. LEVOTHYROXINE [Concomitant]
  4. MELOXICAM [Concomitant]
  5. METHOTREXATAE [Concomitant]
  6. SPRINTEC [Concomitant]
  7. VITAMIN D [Concomitant]

REACTIONS (2)
  - Localised infection [None]
  - Disease complication [None]
